FAERS Safety Report 24321956 (Version 2)
Quarter: 2024Q4

REPORT INFORMATION
  Report Type: Spontaneous
  Country: PL (occurrence: PL)
  Receive Date: 20240916
  Receipt Date: 20241129
  Transmission Date: 20250115
  Serious: Yes (Death, Other)
  Sender: ROCHE
  Company Number: PL-ROCHE-10000078341

PATIENT
  Age: 37 Year
  Sex: Male

DRUGS (8)
  1. OCREVUS [Suspect]
     Active Substance: OCRELIZUMAB
     Indication: Product used for unknown indication
     Dosage: MOST RECENT DOSE OF OCREVUS WAS ON 07/FEB/2024
     Route: 065
     Dates: start: 202001
  2. FINGOLIMOD [Concomitant]
     Active Substance: FINGOLIMOD
     Dates: start: 201312
  3. Adipine [Concomitant]
  4. NEBILENIN [Concomitant]
  5. Pritor [Concomitant]
  6. LAMOTRIGINE [Concomitant]
     Active Substance: LAMOTRIGINE
  7. PREGABALIN [Concomitant]
     Active Substance: PREGABALIN
  8. ORIVEN [Concomitant]

REACTIONS (2)
  - Testis cancer [Unknown]
  - Death [Fatal]
